FAERS Safety Report 4433448-X (Version None)
Quarter: 2004Q3

REPORT INFORMATION
  Report Type: 
  Country: None (occurrence: None)
  Receive Date: 20040824
  Receipt Date: 20040816
  Transmission Date: 20050211
  Serious: Yes (Other)
  Sender: FDA-Public Use
  Company Number: 002385

PATIENT

DRUGS (1)
  1. DIAMOX [Suspect]
     Indication: GLAUCOMA
     Dosage: 500.00 MG, BID, ORAL
     Route: 048

REACTIONS (2)
  - CHRONIC OBSTRUCTIVE AIRWAYS DISEASE EXACERBATED [None]
  - OCCUPATIONAL EXPOSURE TO TOXIC AGENT [None]
